FAERS Safety Report 20685853 (Version 3)
Quarter: 2022Q2

REPORT INFORMATION
  Report Type: Report from Study
  Country: US (occurrence: US)
  Receive Date: 20220407
  Receipt Date: 20220603
  Transmission Date: 20220720
  Serious: Yes (Death, Life-Threatening, Hospitalization, Other)
  Sender: FDA-Public Use
  Company Number: US-GILEAD-2021-0541234

PATIENT
  Age: 65 Year
  Sex: Male
  Weight: 111.9 kg

DRUGS (31)
  1. REMDESIVIR [Suspect]
     Active Substance: REMDESIVIR
     Indication: COVID-19
     Dosage: 100 MG, QD
     Route: 042
     Dates: start: 20210611, end: 20210614
  2. REMDESIVIR [Suspect]
     Active Substance: REMDESIVIR
     Dosage: 200 MG QD PRIOR TO SYUDY ENROLLMENT
     Route: 042
     Dates: start: 20210610
  3. ICATIBANT [Suspect]
     Active Substance: ICATIBANT ACETATE
     Indication: COVID-19
     Dosage: 195 MG
     Route: 042
     Dates: start: 20210611, end: 20210614
  4. NOREPINEPHRINE [Suspect]
     Active Substance: NOREPINEPHRINE
     Indication: Product used for unknown indication
     Dosage: 2.5 UNK
     Route: 042
     Dates: start: 20210614, end: 20210618
  5. PHENYLEPHRINE [Suspect]
     Active Substance: PHENYLEPHRINE HYDROCHLORIDE
     Indication: Blood pressure measurement
     Dosage: 20 UG/MIN
     Route: 042
     Dates: start: 20210615, end: 20210618
  6. PHENYLEPHRINE [Suspect]
     Active Substance: PHENYLEPHRINE HYDROCHLORIDE
     Indication: Haemodynamic instability
  7. VASOPRESSIN [Suspect]
     Active Substance: VASOPRESSIN
     Indication: Distributive shock
     Dosage: 0.4 UNK
     Route: 042
     Dates: start: 20210616, end: 20210618
  8. VASOPRESSIN [Suspect]
     Active Substance: VASOPRESSIN
     Dosage: 0.04 U/MIN AT 6ML/H
     Route: 042
  9. EPINEPHRINE [Suspect]
     Active Substance: EPINEPHRINE
     Indication: Haemodynamic instability
     Dosage: UNK DOSAGE FORM
     Route: 042
     Dates: start: 20210616, end: 20210618
  10. EPINEPHRINE [Suspect]
     Active Substance: EPINEPHRINE
     Dosage: 1 UG/MIN AT 7.5 ML/H
     Route: 042
  11. HYDROCORTISONE [Concomitant]
     Active Substance: HYDROCORTISONE
     Indication: Product used for unknown indication
     Dosage: 50 MG, Q6H
     Route: 042
     Dates: start: 20210618
  12. DEXAMETHASONE [Concomitant]
     Active Substance: DEXAMETHASONE
     Dosage: LESS THAN OR EQQUAL TO 8 MG QD BEFORE STUDY
     Route: 042
  13. DEXAMETHASONE [Concomitant]
     Active Substance: DEXAMETHASONE
     Dosage: 6 MG QD
     Route: 042
     Dates: start: 20210611, end: 20210618
  14. OXYGEN [Concomitant]
     Active Substance: OXYGEN
     Dosage: 40 L JHFNASAL CANNULA 100%,  PROGRESSING TO BIPAP
     Dates: start: 20210610, end: 20210614
  15. TOCILIZUMAB [Concomitant]
     Active Substance: TOCILIZUMAB
     Dosage: 800 MG
     Dates: start: 20210611
  16. ACETAMINOPHEN [Concomitant]
     Active Substance: ACETAMINOPHEN
     Dosage: 650 MG Q4H PRN
     Route: 048
  17. ASCORBIC ACID [Concomitant]
     Active Substance: ASCORBIC ACID
     Dosage: 1000 MG NJ TUBE
     Dates: start: 20210615, end: 20210618
  18. BUDESONIDE [Concomitant]
     Active Substance: BUDESONIDE
     Dosage: 0.25 MG, BID VIA NEB
     Dates: start: 20210611, end: 20210618
  19. CHOLECALCIFEROL [Concomitant]
     Active Substance: CHOLECALCIFEROL
     Indication: COVID-19
     Dosage: 5000 UNITS QD, NJ TUBE
     Dates: start: 20210611, end: 20210618
  20. CEFEPIME [Concomitant]
     Active Substance: CEFEPIME HYDROCHLORIDE
     Indication: Respiratory tract infection
     Dosage: 2 G, Q8H
     Route: 042
     Dates: start: 20210615, end: 20210618
  21. VANCOMYCIN [Concomitant]
     Active Substance: VANCOMYCIN
     Dosage: 250 ML/H OVER 60 MINS Q36H
     Route: 042
     Dates: start: 202106, end: 202106
  22. ENOXAPARIN [Concomitant]
     Active Substance: ENOXAPARIN
     Indication: Thrombosis prophylaxis
     Dosage: 40 MG Q24H
     Route: 058
     Dates: start: 20210615, end: 20210617
  23. MIDAZOLAM [Concomitant]
     Active Substance: MIDAZOLAM
     Indication: Anxiety
     Dosage: 1 MG/H
     Route: 042
     Dates: start: 20210615
  24. MIDAZOLAM [Concomitant]
     Active Substance: MIDAZOLAM
     Indication: Agitation
  25. CISATRACURIUM [Concomitant]
     Active Substance: CISATRACURIUM
     Indication: Ventilation perfusion mismatch
     Dosage: 10 MG/H
     Route: 041
     Dates: start: 20210615, end: 20210618
  26. ZINC SULFATE [Concomitant]
     Active Substance: ZINC SULFATE
     Indication: Supplementation therapy
     Dosage: 220 MG QD - NJ TUBE
     Dates: start: 20210611
  27. HEPARIN [Concomitant]
     Active Substance: HEPARIN SODIUM
     Dosage: 5000 UNITS Q8H
     Route: 058
  28. DOPAMINE [Concomitant]
     Active Substance: DOPAMINE HYDROCHLORIDE
     Dosage: 5UG/KG/MIN AT 20398 ML/H
     Route: 042
  29. ALBUTEROL [Concomitant]
     Active Substance: ALBUTEROL
     Dosage: 2.5 MG ONCE VIA NEB
     Dates: start: 20210610
  30. IPRATROPIUM BROMIDE [Concomitant]
     Active Substance: IPRATROPIUM BROMIDE
     Dosage: 3 ML Q4H VIA NEB
     Dates: start: 20210610, end: 20210618
  31. VECURONIUM [Concomitant]
     Active Substance: VECURONIUM BROMIDE
     Dosage: 10 MG
     Route: 042

REACTIONS (3)
  - Acute kidney injury [Not Recovered/Not Resolved]
  - Transaminases increased [Not Recovered/Not Resolved]
  - Multiple organ dysfunction syndrome [Fatal]

NARRATIVE: CASE EVENT DATE: 20210617
